FAERS Safety Report 5381527-5 (Version None)
Quarter: 2007Q3

REPORT INFORMATION
  Report Type: 
  Country: None (occurrence: None)
  Receive Date: 20070703
  Receipt Date: 20070703
  Transmission Date: 20080115
  Serious: No
  Sender: FDA-Public Use
  Company Number: None

PATIENT
  Age: 41 Year
  Sex: Male
  Weight: 92.0802 kg

DRUGS (2)
  1. ACCUPRIL [Suspect]
     Indication: HYPERTENSION
     Dosage: 20 MG ONE TIME P.O. QD
     Route: 048
  2. TIAZAC [Suspect]
     Indication: HYPERTENSION
     Dosage: 300 MG ONE TIME P.O. QD
     Route: 048

REACTIONS (1)
  - PALPITATIONS [None]
